FAERS Safety Report 12759946 (Version 7)
Quarter: 2018Q1

REPORT INFORMATION
  Report Type: Spontaneous
  Country: US (occurrence: US)
  Receive Date: 20160919
  Receipt Date: 20180104
  Transmission Date: 20180508
  Serious: Yes (Death, Hospitalization, Other)
  Sender: FDA-Public Use
  Company Number: US-PFIZER INC-2016435424

PATIENT
  Age: 64 Year
  Sex: Female

DRUGS (3)
  1. BUPIVACAINE HCL [Suspect]
     Active Substance: BUPIVACAINE HYDROCHLORIDE
     Indication: OSTEOARTHRITIS
     Dosage: 4 ML, 0.25%
     Route: 014
     Dates: start: 20160829
  2. LIDOCAINE HCL [Suspect]
     Active Substance: LIDOCAINE HYDROCHLORIDE
     Indication: OSTEOARTHRITIS
     Dosage: 2 ML, 1%
     Route: 014
     Dates: start: 20160829
  3. DEPO-MEDROL [Suspect]
     Active Substance: METHYLPREDNISOLONE ACETATE
     Indication: OSTEOARTHRITIS
     Dosage: 2 ML, 40 MG/ML
     Route: 014
     Dates: start: 20160829

REACTIONS (5)
  - Product use in unapproved indication [Fatal]
  - Injection site pain [Unknown]
  - Arthritis infective [Unknown]
  - Death [Fatal]
  - Product use issue [Fatal]

NARRATIVE: CASE EVENT DATE: 20160829
